FAERS Safety Report 26105392 (Version 3)
Quarter: 2025Q4

REPORT INFORMATION
  Report Type: Spontaneous
  Country: EU (occurrence: EU)
  Receive Date: 20251201
  Receipt Date: 20251218
  Transmission Date: 20260118
  Serious: Yes (Other)
  Sender: CELLTRION
  Company Number: EU-ABBVIE-6557129

PATIENT

DRUGS (3)
  1. ADALIMUMAB [Suspect]
     Active Substance: ADALIMUMAB
     Indication: Pyoderma gangrenosum
     Dosage: UNK
     Route: 058
  2. ADALIMUMAB [Suspect]
     Active Substance: ADALIMUMAB
     Dosage: 80 MG EVERY 1 WEEK (DOSE INCREASED/80 MILLIGRAM, QWK)
     Route: 058
  3. ADALIMUMAB [Suspect]
     Active Substance: ADALIMUMAB
     Dosage: UNK, Q2WK
     Route: 058

REACTIONS (5)
  - Pyoderma gangrenosum [Recovering/Resolving]
  - Disease progression [Unknown]
  - Ulcer [Unknown]
  - Drug ineffective for unapproved indication [Unknown]
  - Off label use [Unknown]
